FAERS Safety Report 9531517 (Version 2)
Quarter: 2014Q1

REPORT INFORMATION
  Report Type: Spontaneous
  Country: US (occurrence: US)
  Receive Date: 20130918
  Receipt Date: 20140204
  Transmission Date: 20141002
  Serious: Yes (Other)
  Sender: FDA-Public Use
  Company Number: US-PFIZER INC-2013265769

PATIENT
  Sex: 0

DRUGS (1)
  1. XALATAN [Suspect]
     Dosage: UNK
     Dates: start: 20130913

REACTIONS (1)
  - Glaucoma [Unknown]
